FAERS Safety Report 5947101-4 (Version None)
Quarter: 2008Q4

REPORT INFORMATION
  Report Type: 
  Country: None (occurrence: None)
  Receive Date: 20081110
  Receipt Date: 20081030
  Transmission Date: 20090506
  Serious: Yes (Hospitalization)
  Sender: FDA-Public Use
  Company Number: RS-SANOFI-SYNTHELABO-A01200813767

PATIENT
  Age: 65 Year
  Sex: Female

DRUGS (2)
  1. NSAID [Concomitant]
     Indication: DRUG USE FOR UNKNOWN INDICATION
     Dosage: UNK
     Route: 065
  2. CHLOROQUINE [Suspect]
     Indication: DRUG USE FOR UNKNOWN INDICATION
     Dosage: 250 MG
     Route: 065
     Dates: start: 20040101, end: 20070101

REACTIONS (1)
  - CEREBELLAR ATAXIA [None]
